FAERS Safety Report 5476514-2 (Version None)
Quarter: 2007Q3

REPORT INFORMATION
  Report Type: 
  Country: None (occurrence: None)
  Receive Date: 20070924
  Receipt Date: 20070404
  Transmission Date: 20080115
  Serious: Yes (Other)
  Sender: FDA-Public Use
  Company Number: PHEH2007US02187

PATIENT
  Age: 58 Year
  Sex: Female

DRUGS (5)
  1. FEMARA [Suspect]
     Dosage: 2.5 MG, QD, ORAL
     Route: 048
     Dates: start: 20070217
  2. RITALIN [Concomitant]
  3. CYMBALTA [Concomitant]
  4. TRICOR [Concomitant]
  5. MULTIVITAMINS (ASCORBIC ACID, ERGOCALCIFEROL, FOLIC ACID, NICOTINAMIDE [Concomitant]

REACTIONS (3)
  - DIARRHOEA [None]
  - RETCHING [None]
  - VOMITING [None]
